FAERS Safety Report 5112901-X (Version None)
Quarter: 2006Q3

REPORT INFORMATION
  Report Type: 
  Country: None (occurrence: None)
  Receive Date: 20060922
  Receipt Date: 20060911
  Transmission Date: 20061208
  Serious: Yes (Other)
  Sender: FDA-Public Use
  Company Number: GB-JNJFOC-20060903403

PATIENT
  Age: 62 Year
  Sex: Female

DRUGS (5)
  1. TRAMACET [Suspect]
     Indication: ARTHRALGIA
     Route: 048
     Dates: start: 20060809, end: 20060816
  2. TRAMACET [Suspect]
     Indication: BACK PAIN
     Route: 048
     Dates: start: 20060809, end: 20060816
  3. ADCAL-D3 [Concomitant]
     Indication: OSTEOPOROSIS
     Route: 048
     Dates: start: 20050101
  4. OMEPRAZOLE [Concomitant]
     Indication: ABDOMINAL PAIN UPPER
     Route: 048
  5. SOLPADOL [Concomitant]
     Indication: PAIN
     Route: 048
     Dates: start: 20060715, end: 20060806

REACTIONS (4)
  - HYPERHIDROSIS [None]
  - HYPOAESTHESIA [None]
  - MALAISE [None]
  - PAIN IN EXTREMITY [None]
